FAERS Safety Report 12314528 (Version 1)
Quarter: 2016Q2

REPORT INFORMATION
  Report Type: Spontaneous
  Country: US (occurrence: US)
  Receive Date: 20160428
  Receipt Date: 20160428
  Transmission Date: 20160815
  Serious: Yes (Hospitalization, Other)
  Sender: FDA-Public Use
  Company Number: US-GLAXOSMITHKLINE-US2016058841

PATIENT
  Sex: Male

DRUGS (11)
  1. CYCLOBENZAPRINE [Concomitant]
     Active Substance: CYCLOBENZAPRINE
  2. ADVAIR DISKUS [Suspect]
     Active Substance: FLUTICASONE PROPIONATE\SALMETEROL XINAFOATE
     Indication: PRODUCT USED FOR UNKNOWN INDICATION
     Dosage: UNK, BID
     Route: 055
     Dates: start: 200110
  3. FUROSEMIDE. [Concomitant]
     Active Substance: FUROSEMIDE
  4. LISINOPRIL. [Concomitant]
     Active Substance: LISINOPRIL
  5. DULOXETINE. [Concomitant]
     Active Substance: DULOXETINE
  6. TAMSULOSIN [Concomitant]
     Active Substance: TAMSULOSIN
  7. ELIQUIS [Concomitant]
     Active Substance: APIXABAN
  8. ALLOPURINOL. [Concomitant]
     Active Substance: ALLOPURINOL
  9. SPIRIVA [Concomitant]
     Active Substance: TIOTROPIUM BROMIDE MONOHYDRATE
  10. VENTOLIN HFA [Suspect]
     Active Substance: ALBUTEROL SULFATE
     Indication: PRODUCT USED FOR UNKNOWN INDICATION
     Dosage: 2 PUFF(S), PRN
     Route: 055
     Dates: start: 200110
  11. CLONAZEPAM. [Concomitant]
     Active Substance: CLONAZEPAM

REACTIONS (10)
  - Thrombosis [Not Recovered/Not Resolved]
  - Asthma [Not Recovered/Not Resolved]
  - Ill-defined disorder [Not Recovered/Not Resolved]
  - Prostatomegaly [Not Recovered/Not Resolved]
  - Multiple allergies [Not Recovered/Not Resolved]
  - Condition aggravated [Not Recovered/Not Resolved]
  - Inability to afford medication [Not Recovered/Not Resolved]
  - Pulmonary embolism [Recovered/Resolved]
  - Skin discolouration [Not Recovered/Not Resolved]
  - Peripheral swelling [Not Recovered/Not Resolved]
